FAERS Safety Report 14454592 (Version 1)
Quarter: 2018Q1

REPORT INFORMATION
  Report Type: Spontaneous
  Country: US (occurrence: US)
  Receive Date: 20180129
  Receipt Date: 20180129
  Transmission Date: 20180509
  Serious: No
  Sender: FDA-Public Use
  Company Number: US-ALLERGAN-1705885US

PATIENT
  Age: 30 Year
  Sex: Female

DRUGS (1)
  1. NORETHINDRONE UNK [Suspect]
     Active Substance: NORETHINDRONE ACETATE
     Indication: CONTRACEPTION
     Dosage: UNK
     Route: 065

REACTIONS (1)
  - Menstruation irregular [Unknown]
